FAERS Safety Report 5705243-2 (Version None)
Quarter: 2008Q2

REPORT INFORMATION
  Report Type: 
  Country: None (occurrence: None)
  Receive Date: 20080410
  Receipt Date: 20080407
  Transmission Date: 20081010
  Serious: Yes (Life-Threatening)
  Sender: FDA-Public Use
  Company Number: LTI2008A00086

PATIENT
  Age: 26 Year
  Sex: Female

DRUGS (2)
  1. ENANTONE LP                 (LEUPROLIDE ACETATE) (INJECTION) [Suspect]
     Indication: IN VITRO FERTILISATION
     Dosage: 3.75 MG (3.75 MG,ONCE), SUBCUTANEOUS
     Route: 058
     Dates: start: 20011102, end: 20011102
  2. PUREGON               (FOLLITROPIN BETA) (INJECTION) [Suspect]
     Indication: IN VITRO FERTILISATION
     Dosage: 1200 IU (1200 IU), SUBCUTANEOUS
     Route: 058
     Dates: start: 20011103, end: 20011113

REACTIONS (4)
  - ABDOMINAL PAIN [None]
  - ASCITES [None]
  - OVARIAN HYPERSTIMULATION SYNDROME [None]
  - PLEURAL EFFUSION [None]
